FAERS Safety Report 24354642 (Version 2)
Quarter: 2024Q4

REPORT INFORMATION
  Report Type: Spontaneous
  Country: JP (occurrence: JP)
  Receive Date: 20240923
  Receipt Date: 20241224
  Transmission Date: 20250115
  Serious: Yes (Hospitalization, Other)
  Sender: MERCK
  Company Number: JP-MSD-M2024-31344

PATIENT
  Age: 76 Year
  Sex: Male

DRUGS (1)
  1. KEYTRUDA [Suspect]
     Active Substance: PEMBROLIZUMAB
     Indication: Non-small cell lung cancer stage IV
     Dosage: 200 MILLIGRAM, Q3W
     Route: 041
     Dates: start: 202407, end: 202407

REACTIONS (4)
  - Interstitial lung disease [Recovered/Resolved]
  - Oesophageal stenosis [Unknown]
  - Malignant neoplasm progression [Unknown]
  - Lymphoedema [Unknown]

NARRATIVE: CASE EVENT DATE: 20240101
